FAERS Safety Report 10026728 (Version 1)
Quarter: 2014Q1

REPORT INFORMATION
  Report Type: Report from Study
  Country: GR (occurrence: GR)
  Receive Date: 20140321
  Receipt Date: 20140321
  Transmission Date: 20141002
  Serious: Yes (Hospitalization)
  Sender: FDA-Public Use
  Company Number: GR-ROCHE-1365888

PATIENT
  Age: 74 Year
  Sex: Male
  Weight: 95 kg

DRUGS (4)
  1. RITUXIMAB [Suspect]
     Indication: CHRONIC LYMPHOCYTIC LEUKAEMIA
     Route: 042
     Dates: start: 20130424
  2. ENDOXAN [Suspect]
     Indication: CHEMOTHERAPY
     Route: 042
     Dates: start: 20130403
  3. ONCOVIN [Suspect]
     Indication: CHEMOTHERAPY
     Route: 042
     Dates: start: 20130403
  4. MEDROL [Suspect]
     Indication: CHEMOTHERAPY
     Dosage: 64 MG, 5 DAYS
     Route: 065
     Dates: start: 20130403

REACTIONS (2)
  - Ascites [Recovered/Resolved]
  - Pleural effusion [Recovered/Resolved]
